FAERS Safety Report 9507914 (Version 1)
Quarter: 2013Q3

REPORT INFORMATION
  Report Type: Spontaneous
  Country: US (occurrence: None)
  Receive Date: 20130906
  Receipt Date: 20130906
  Transmission Date: 20140515
  Serious: Yes (Life-Threatening)
  Sender: FDA-Public Use
  Company Number: None

PATIENT
  Age: 40 Year
  Sex: Female

DRUGS (4)
  1. BARACLUDE [Suspect]
     Indication: HEPATITIS C
     Route: 048
     Dates: start: 20120814
  2. GINGER [Concomitant]
  3. LEMON GRASS [Concomitant]
  4. CHINESE HERB #8 [Concomitant]

REACTIONS (3)
  - Abdominal pain [None]
  - Dyspnoea [None]
  - Chest discomfort [None]
